FAERS Safety Report 9833865 (Version 1)
Quarter: 2014Q1

REPORT INFORMATION
  Report Type: Spontaneous
  Country: US (occurrence: US)
  Receive Date: 20140122
  Receipt Date: 20140122
  Transmission Date: 20141002
  Serious: No
  Sender: FDA-Public Use
  Company Number: US-BIOGENIDEC-2014BI005198

PATIENT
  Sex: Female

DRUGS (1)
  1. TECFIDERA [Suspect]
     Indication: MULTIPLE SCLEROSIS
     Route: 048
     Dates: start: 20130606

REACTIONS (4)
  - Polyuria [Not Recovered/Not Resolved]
  - Pain in extremity [Unknown]
  - Musculoskeletal pain [Unknown]
  - Neck pain [Unknown]
